FAERS Safety Report 6493071-2 (Version None)
Quarter: 2009Q4

REPORT INFORMATION
  Report Type: 
  Country: None (occurrence: None)
  Receive Date: 20091214
  Receipt Date: 20091204
  Transmission Date: 20100525
  Serious: Yes (Hospitalization)
  Sender: FDA-Public Use
  Company Number: US-AMGEN-US288167

PATIENT
  Sex: Male

DRUGS (7)
  1. PANITUMUMAB [Suspect]
     Indication: SQUAMOUS CELL CARCINOMA
     Route: 042
     Dates: start: 20080328
  2. CISPLATIN [Concomitant]
  3. DOCETAXEL [Concomitant]
  4. SYNTHROID [Concomitant]
  5. PHENERGAN HCL [Concomitant]
  6. REGLAN [Concomitant]
  7. ALLEGRA [Concomitant]

REACTIONS (1)
  - PNEUMONIA [None]
